FAERS Safety Report 8256149-9 (Version None)
Quarter: 2012Q2

REPORT INFORMATION
  Report Type: 
  Country: None (occurrence: None)
  Receive Date: 20120403
  Receipt Date: 20120320
  Transmission Date: 20120825
  Serious: Yes (Hospitalization)
  Sender: FDA-Public Use
  Company Number: JP-ROCHE-1055810

PATIENT
  Age: 70 Year
  Sex: Female

DRUGS (3)
  1. BEVACIZUMAB [Suspect]
     Indication: LUNG ADENOCARCINOMA
  2. CARBOPLATIN [Suspect]
     Indication: LUNG ADENOCARCINOMA
  3. PACLITAXEL [Suspect]
     Indication: LUNG ADENOCARCINOMA

REACTIONS (1)
  - PNEUMOTHORAX [None]
